FAERS Safety Report 9158150 (Version 1)
Quarter: 2013Q1

REPORT INFORMATION
  Report Type: Spontaneous
  Country: FR (occurrence: None)
  Receive Date: 20130211
  Receipt Date: 20130211
  Transmission Date: 20140127
  Serious: Yes (Other)
  Sender: FDA-Public Use
  Company Number: FK201300382

PATIENT
  Age: 65 Year
  Sex: Male

DRUGS (1)
  1. CEFUROXIM FRESENIUS [Suspect]
     Indication: ENDOPHTHALMITIS
     Dates: start: 20120212, end: 20120216

REACTIONS (2)
  - Macular oedema [None]
  - Off label use [None]
